FAERS Safety Report 10584029 (Version 4)
Quarter: 2016Q1

REPORT INFORMATION
  Report Type: Spontaneous
  Country: US (occurrence: US)
  Receive Date: 20141114
  Receipt Date: 20160108
  Transmission Date: 20160525
  Serious: No
  Sender: FDA-Public Use
  Company Number: US-PFIZER INC-2014310119

PATIENT
  Age: 13 Year
  Sex: Male
  Weight: 72 kg

DRUGS (1)
  1. GENOTROPIN [Suspect]
     Active Substance: SOMATROPIN
     Indication: GROWTH HORMONE DEFICIENCY
     Dosage: 3.8 MG, 1X/DAY (ONCE EVERY EVENING)
     Route: 058
     Dates: start: 2014

REACTIONS (5)
  - Eye swelling [Not Recovered/Not Resolved]
  - Weight increased [Recovered/Resolved]
  - Musculoskeletal stiffness [Unknown]
  - Swelling face [Not Recovered/Not Resolved]
  - Peripheral swelling [Recovered/Resolved]
